FAERS Safety Report 10820980 (Version 1)
Quarter: 2015Q1

REPORT INFORMATION
  Report Type: Spontaneous
  Country: TR (occurrence: None)
  Receive Date: 20150213
  Receipt Date: 20150213
  Transmission Date: 20150721
  Serious: Yes (Hospitalization)
  Sender: FDA-Public Use
  Company Number: TR-DEXPHARM-20150103

PATIENT
  Age: 55 Year
  Sex: Female

DRUGS (1)
  1. DICLOFENAC INJECTION (GLUTEAL) [Suspect]
     Active Substance: DICLOFENAC
     Indication: ARTHRALGIA
     Route: 030

REACTIONS (2)
  - Scar [None]
  - Embolia cutis medicamentosa [None]
